FAERS Safety Report 23939617 (Version 1)
Quarter: 2024Q2

REPORT INFORMATION
  Report Type: Spontaneous
  Country: US (occurrence: US)
  Receive Date: 20240605
  Receipt Date: 20240605
  Transmission Date: 20240716
  Serious: No
  Sender: FDA-Public Use
  Company Number: US-OTSUKA-2022_053372

PATIENT
  Age: 61 Year
  Sex: Male

DRUGS (3)
  1. TOLVAPTAN [Suspect]
     Active Substance: TOLVAPTAN
     Indication: Hyponatraemia
     Dosage: UNK
     Route: 065
     Dates: start: 2009
  2. TOLVAPTAN [Suspect]
     Active Substance: TOLVAPTAN
     Indication: Small cell lung cancer
  3. TOLVAPTAN [Suspect]
     Active Substance: TOLVAPTAN
     Indication: Inappropriate antidiuretic hormone secretion

REACTIONS (2)
  - Product use in unapproved indication [Unknown]
  - Drug resistance [Unknown]
